FAERS Safety Report 9109555 (Version 4)
Quarter: 2013Q2

REPORT INFORMATION
  Report Type: Report from Study
  Country: US (occurrence: US)
  Receive Date: 20130125
  Receipt Date: 20130507
  Transmission Date: 20140414
  Serious: Yes (Other)
  Sender: FDA-Public Use
  Company Number: US-TEVA-381607USA

PATIENT
  Age: 31 Year
  Sex: Female

DRUGS (3)
  1. CLARAVIS [Suspect]
     Dosage: 20 MILLIGRAM DAILY;
     Dates: start: 201210, end: 201212
  2. UNKNOWN MEDICATION FOR MIGRAINES [Concomitant]
  3. BIRTH CONTROL PILL [Concomitant]

REACTIONS (2)
  - Abortion spontaneous [Recovered/Resolved]
  - Unintended pregnancy [Recovered/Resolved]
